FAERS Safety Report 7474687-3 (Version None)
Quarter: 2011Q1

REPORT INFORMATION
  Report Type: 
  Country: None (occurrence: None)
  Receive Date: 20110302
  Receipt Date: 20101015
  Transmission Date: 20110831
  Serious: Yes (Death)
  Sender: FDA-Public Use
  Company Number: 163-21880-10041749

PATIENT
  Age: 65 Year
  Sex: Female

DRUGS (2)
  1. REVLIMID [Suspect]
     Indication: MULTIPLE MYELOMA
     Dosage: 15 MG, DAILY X 21 DAYS, PO; 15 MG, DAILY X 21 DAYS WITH 7 DAYS OFF, PO
     Route: 048
     Dates: start: 20091101
  2. REVLIMID [Suspect]
     Indication: MULTIPLE MYELOMA
     Dosage: 15 MG, DAILY X 21 DAYS, PO; 15 MG, DAILY X 21 DAYS WITH 7 DAYS OFF, PO
     Route: 048
     Dates: start: 20100215, end: 20100301

REACTIONS (2)
  - SEPSIS [None]
  - DIABETES MELLITUS [None]
